FAERS Safety Report 9129847 (Version 3)
Quarter: 2013Q3

REPORT INFORMATION
  Report Type: Spontaneous
  Country: BE (occurrence: BE)
  Receive Date: 20130125
  Receipt Date: 20130730
  Transmission Date: 20140515
  Serious: Yes (Death, Other)
  Sender: FDA-Public Use
  Company Number: BE-PFIZER INC-2013028953

PATIENT
  Age: 57 Year
  Sex: Male
  Weight: 82 kg

DRUGS (8)
  1. CHAMPIX [Suspect]
     Indication: SMOKING CESSATION THERAPY
     Dosage: 1 MG, 2X/DAY
     Route: 048
     Dates: start: 20121125
  2. WARFARIN [Suspect]
     Indication: CARDIOVASCULAR DISORDER
     Dosage: UNK
     Dates: start: 20121205
  3. DEPAKINE [Concomitant]
     Dosage: UNK
  4. KEPPRA [Concomitant]
     Dosage: UNK
  5. ALLOPURINOL [Concomitant]
     Dosage: UNK
  6. PROGOR [Concomitant]
     Dosage: UNK
  7. PERINDOPRIL [Concomitant]
     Dosage: UNK
  8. ALDACTONE [Concomitant]
     Dosage: UNK

REACTIONS (5)
  - Pulmonary haemorrhage [Fatal]
  - Pulmonary congestion [Fatal]
  - Lung neoplasm malignant [Unknown]
  - Haemoptysis [Not Recovered/Not Resolved]
  - Haematemesis [Not Recovered/Not Resolved]
